FAERS Safety Report 17725452 (Version 2)
Quarter: 2021Q4

REPORT INFORMATION
  Report Type: Spontaneous
  Country: CH (occurrence: CH)
  Receive Date: 20200429
  Receipt Date: 20211201
  Transmission Date: 20220303
  Serious: Yes (Life-Threatening, Hospitalization, Other)
  Sender: FDA-Public Use
  Company Number: None

PATIENT
  Age: 57 Year
  Sex: Male

DRUGS (12)
  1. ZITHROMAX [Interacting]
     Active Substance: AZITHROMYCIN DIHYDRATE
     Indication: Coronavirus infection
     Dosage: 500 MG, 1X/DAY
     Route: 048
     Dates: start: 20200406, end: 20200407
  2. PLAQUENIL [Interacting]
     Active Substance: HYDROXYCHLOROQUINE SULFATE
     Indication: Coronavirus infection
     Dosage: 800 MG, SINGLE
     Route: 048
     Dates: start: 20200402, end: 20200402
  3. LEVOFLOXACIN [Interacting]
     Active Substance: LEVOFLOXACIN
     Indication: Bacterial diarrhoea
     Dosage: 500 MG, 1X/DAY
     Route: 048
     Dates: start: 20200403, end: 20200407
  4. TACROLIMUS [Concomitant]
     Active Substance: TACROLIMUS
     Dosage: 4 MG, 1X/DAY
     Route: 048
     Dates: start: 20200401
  5. CALCIUM\CHOLECALCIFEROL [Concomitant]
     Active Substance: CALCIUM\CHOLECALCIFEROL
     Dosage: UNK
     Dates: start: 20200401
  6. CEFUROXIME [Concomitant]
     Active Substance: CEFUROXIME
     Dosage: 1.5 G, 3X/DAY
     Route: 042
     Dates: start: 20200402, end: 20200403
  7. AMOXICILLIN\CLAVULANATE POTASSIUM [Concomitant]
     Active Substance: AMOXICILLIN\CLAVULANATE POTASSIUM
     Dosage: 1.2 G, 3X/DAY
     Route: 042
     Dates: start: 20200401, end: 20200402
  8. FLAGYL [Concomitant]
     Active Substance: METRONIDAZOLE\METRONIDAZOLE HYDROCHLORIDE
     Indication: Bacterial diarrhoea
     Dosage: 500 MG, 3X/DAY
     Route: 048
     Dates: start: 20200403, end: 20200405
  9. FOLIC ACID [Concomitant]
     Active Substance: FOLIC ACID
     Dosage: UNK
     Dates: start: 20200401
  10. LASIX [Concomitant]
     Active Substance: FUROSEMIDE
     Indication: Renal impairment
     Dosage: 40 MG, 1X/DAY
     Route: 042
     Dates: start: 20200405
  11. MYFORTIC [Concomitant]
     Active Substance: MYCOPHENOLATE SODIUM
     Dosage: 720 MG, 2X/DAY
     Route: 048
     Dates: start: 20200401, end: 20200401
  12. PIPERACILLIN SODIUM\TAZOBACTAM SODIUM [Concomitant]
     Active Substance: PIPERACILLIN SODIUM\TAZOBACTAM SODIUM
     Indication: Opportunistic infection
     Dosage: 2.25 G, 3X/DAY
     Route: 042
     Dates: start: 20200407

REACTIONS (6)
  - Electrocardiogram QT prolonged [Recovered/Resolved]
  - Opportunistic infection [Unknown]
  - Hyperkalaemia [Recovered/Resolved]
  - Drug interaction [Unknown]
  - Product use in unapproved indication [Unknown]
  - Off label use [Unknown]

NARRATIVE: CASE EVENT DATE: 20200406
